FAERS Safety Report 25954709 (Version 1)
Quarter: 2025Q4

REPORT INFORMATION
  Report Type: Report from Study
  Country: JP (occurrence: JP)
  Receive Date: 20251024
  Receipt Date: 20251024
  Transmission Date: 20260118
  Serious: Yes (Other)
  Sender: ALEXION PHARMACEUTICALS
  Company Number: JP-ASTRAZENECA-202510JPN016366JP

PATIENT
  Age: 8 Year
  Sex: Female
  Weight: 29.6 kg

DRUGS (2)
  1. KOSELUGO [Suspect]
     Active Substance: SELUMETINIB
     Indication: Neurofibromatosis
     Dosage: 50 MILLIGRAM, QD (MOSTLY ON AN EMPTY STOMACH)
     Route: 065
     Dates: start: 20241008, end: 20250617
  2. KOSELUGO [Suspect]
     Active Substance: SELUMETINIB
     Dosage: 25 MILLIGRAM, QD (MOSTLY ON AN EMPTY STOMACH)
     Route: 065
     Dates: start: 20250819

REACTIONS (1)
  - Acne [Recovering/Resolving]

NARRATIVE: CASE EVENT DATE: 20250617
